FAERS Safety Report 10903227 (Version 1)
Quarter: 2015Q1

REPORT INFORMATION
  Report Type: Spontaneous
  Country: IT (occurrence: IT)
  Receive Date: 20150311
  Receipt Date: 20150311
  Transmission Date: 20150721
  Serious: Yes (Other)
  Sender: FDA-Public Use
  Company Number: IT-ROCHE-1549706

PATIENT
  Age: 74 Year
  Sex: Female

DRUGS (3)
  1. ZOLOFT [Concomitant]
     Active Substance: SERTRALINE HYDROCHLORIDE
     Dosage: 50 MG FILM-COATED TABLETS 30 SCORED TABLETS
     Route: 048
  2. CEFTRIAXONE. [Suspect]
     Active Substance: CEFTRIAXONE
     Indication: BRONCHITIS
     Route: 030
     Dates: start: 20150108, end: 20150108
  3. OLPRESS [Concomitant]
     Active Substance: OLMESARTAN MEDOXOMIL
     Dosage: 28 20 MG FILM-COATED TABLETS IN AL/AL BLISTER
     Route: 048

REACTIONS (3)
  - Rash [Recovering/Resolving]
  - Respiratory disorder [Recovering/Resolving]
  - Drug hypersensitivity [Recovering/Resolving]

NARRATIVE: CASE EVENT DATE: 20150108
